FAERS Safety Report 8860392 (Version 2)
Quarter: 2013Q1

REPORT INFORMATION
  Report Type: Spontaneous
  Country: US (occurrence: US)
  Receive Date: 20121025
  Receipt Date: 20130117
  Transmission Date: 20140127
  Serious: Yes (Other)
  Sender: FDA-Public Use
  Company Number: US-009507513-1210USA009712

PATIENT
  Age: 50 Year
  Sex: Female

DRUGS (3)
  1. ISENTRESS [Suspect]
     Indication: HIV INFECTION
     Dosage: UNK
     Route: 048
  2. HYDRALAZINE [Concomitant]
  3. TRUVADA [Concomitant]

REACTIONS (1)
  - Drug reaction with eosinophilia and systemic symptoms [Unknown]
